FAERS Safety Report 15715470 (Version 1)
Quarter: 2018Q4

REPORT INFORMATION
  Report Type: Spontaneous
  Country: US (occurrence: US)
  Receive Date: 20181212
  Receipt Date: 20181212
  Transmission Date: 20190205
  Serious: No
  Sender: FDA-Public Use
  Company Number: US-MYLANLABS-2018M1088537

PATIENT
  Sex: Female
  Weight: 78 kg

DRUGS (10)
  1. ESTRADIOL TRANSDERMAL SYSTEM [Suspect]
     Active Substance: ESTRADIOL
     Dosage: 0.05 MILLIGRAM, QD
     Route: 062
     Dates: start: 20180801
  2. ARAVA [Concomitant]
     Active Substance: LEFLUNOMIDE
  3. PROZAC [Concomitant]
     Active Substance: FLUOXETINE HYDROCHLORIDE
  4. ESTRADIOL TRANSDERMAL SYSTEM [Suspect]
     Active Substance: ESTRADIOL
     Indication: HORMONE REPLACEMENT THERAPY
     Dosage: UNK UNK,
     Route: 062
     Dates: start: 20180714
  5. KEPPRA [Concomitant]
     Active Substance: LEVETIRACETAM
  6. DEPAKOTE [Concomitant]
     Active Substance: DIVALPROEX SODIUM
  7. BENLYSTA [Concomitant]
     Active Substance: BELIMUMAB
  8. VITAMIN D3 [Concomitant]
     Active Substance: CHOLECALCIFEROL
  9. LIALDA [Concomitant]
     Active Substance: MESALAMINE
  10. NEXIUM [Concomitant]
     Active Substance: ESOMEPRAZOLE MAGNESIUM

REACTIONS (8)
  - Blood oestrogen decreased [Not Recovered/Not Resolved]
  - Wrong technique in product usage process [Not Recovered/Not Resolved]
  - Hot flush [Not Recovered/Not Resolved]
  - Product adhesion issue [Unknown]
  - Mood swings [Not Recovered/Not Resolved]
  - Drug effect decreased [Not Recovered/Not Resolved]
  - Body temperature decreased [Not Recovered/Not Resolved]
  - Nasopharyngitis [Not Recovered/Not Resolved]
